FAERS Safety Report 4307120-0 (Version None)
Quarter: 2004Q1

REPORT INFORMATION
  Report Type: 
  Country: None (occurrence: None)
  Receive Date: 20040225
  Receipt Date: 20040210
  Transmission Date: 20041129
  Serious: Yes (Hospitalization)
  Sender: FDA-Public Use
  Company Number: US_031199103

PATIENT
  Age: 20 Week
  Sex: Male

DRUGS (23)
  1. CEFACLOR [Suspect]
     Indication: OTITIS MEDIA ACUTE
     Dosage: 750 MG/DAY
     Dates: start: 20030428, end: 20030430
  2. CEFACLOR [Suspect]
     Indication: OTITIS MEDIA ACUTE
     Dosage: 750 MG/DAY
     Dates: start: 20030428, end: 20030430
  3. CEFACLOR [Suspect]
     Indication: OTITIS MEDIA ACUTE
     Dosage: 750 GM/DAY
     Dates: start: 20030523, end: 20030526
  4. CEFACLOR [Suspect]
     Indication: OTITIS MEDIA ACUTE
     Dosage: 750 MG/DAY
     Dates: start: 20030822, end: 20030825
  5. PERIACTIN [Concomitant]
  6. MUCOSAL (ACETYLCYSTEINE) [Concomitant]
  7. ASVERIN(TIPEPIDINE HIBENZATE) [Concomitant]
  8. BISOLVO(BROMHEXINE HYDROCHLORIDE) [Concomitant]
  9. HOKUNALIN(TULOBUTEROL HYDROCHLORIDE) [Concomitant]
  10. BIOFERMIN [Concomitant]
  11. BIOFERMIN R (STREPTOCOCCUS FAECALIS) [Concomitant]
  12. ALLERGIN(CHLORPHENAMINE MALEATE) [Concomitant]
  13. NIFLAN(PRANOPROFEN) [Concomitant]
  14. LAC B-R [Concomitant]
  15. CEFSPAN(CEFIXIME) [Concomitant]
  16. ECOLICIN [Concomitant]
  17. LEVOFLOXACIN [Concomitant]
  18. CALONAL(PARACETAMOL) [Concomitant]
  19. ERYTHROCIN [Concomitant]
  20. FAROM(FAROPENEM SODIUM) [Concomitant]
  21. FLOMOX(CEFCAPENE PIVOXIL HYDROCHLORIDE) [Concomitant]
  22. PIPERACILLIN SODIUM [Concomitant]
  23. CLINDAMYCIN HCL [Concomitant]

REACTIONS (12)
  - ABSCESS OF EYELID [None]
  - AGRANULOCYTOSIS [None]
  - DRUG HYPERSENSITIVITY [None]
  - HEPATIC FUNCTION ABNORMAL [None]
  - LYMPHOCYTE MORPHOLOGY ABNORMAL [None]
  - LYMPHOCYTE STIMULATION TEST POSITIVE [None]
  - NEUTROPENIA [None]
  - OTITIS MEDIA ACUTE [None]
  - PNEUMONIA [None]
  - PYREXIA [None]
  - SPLENOMEGALY [None]
  - THROMBOCYTOPENIA [None]
